FAERS Safety Report 9027212 (Version 2)
Quarter: 2013Q2

REPORT INFORMATION
  Report Type: Spontaneous
  Country: US (occurrence: US)
  Receive Date: 20130123
  Receipt Date: 20130403
  Transmission Date: 20140414
  Serious: Yes (Hospitalization)
  Sender: FDA-Public Use
  Company Number: US-B.I. PHARMACEUTICALS,INC./RIDGEFIELD-2012-BP-23875BP

PATIENT
  Age: 83 Year
  Sex: Female
  Weight: 97.52 kg

DRUGS (9)
  1. PRADAXA [Suspect]
     Indication: ATRIAL FIBRILLATION
     Dosage: 300 MG
     Route: 048
     Dates: start: 201011, end: 201110
  2. PRADAXA [Suspect]
     Indication: ANTICOAGULANT THERAPY
  3. LASIX [Concomitant]
     Indication: OEDEMA
     Dosage: 40 MG
  4. LEVOTHROID [Concomitant]
     Dosage: 88 MCG
     Route: 048
  5. LORTAB [Concomitant]
     Indication: PAIN
     Route: 048
  6. METOPROLOL TARTRATE [Concomitant]
     Dosage: 100 MG
     Route: 048
  7. NYSTATIN-TRIAMCINOLONE [Concomitant]
     Route: 062
  8. POTASSIUM CHLORIDE [Concomitant]
     Dosage: 20 MEQ
     Route: 048
  9. ZANTAC [Concomitant]
     Dosage: 300 MG
     Route: 048

REACTIONS (5)
  - Haemorrhage [Recovered/Resolved]
  - Renal haemorrhage [Recovered/Resolved]
  - Epistaxis [Recovered/Resolved]
  - Rectal haemorrhage [Recovered/Resolved]
  - Gastrointestinal haemorrhage [Recovered/Resolved]
